FAERS Safety Report 22355386 (Version 1)
Quarter: 2023Q2

REPORT INFORMATION
  Report Type: Report from Study
  Country: GB (occurrence: GB)
  Receive Date: 20230523
  Receipt Date: 20230523
  Transmission Date: 20230722
  Serious: Yes (Other)
  Sender: FDA-Public Use
  Company Number: GB-MYLANLABS-2023M1053177

PATIENT
  Age: 53 Year
  Sex: Male

DRUGS (5)
  1. FLUDARABINE [Suspect]
     Active Substance: FLUDARABINE PHOSPHATE
     Indication: Bone marrow conditioning regimen
     Dosage: 30 MILLIGRAM/SQ. METER, RECEIVED ON DAYS -7 TO -3 OF TRANSPLANTATION
     Route: 042
  2. ACYCLOVIR [Suspect]
     Active Substance: ACYCLOVIR
     Indication: Antiviral prophylaxis
     Dosage: 200 MILLIGRAM, BID, RECEIVED AFTER TRANSPLANTATION
     Route: 048
  3. ALEMTUZUMAB [Suspect]
     Active Substance: ALEMTUZUMAB
     Indication: Bone marrow conditioning regimen
     Dosage: UNK, RECEIVED PRIOR TO TRANSPLANTATION
     Route: 042
  4. MELPHALAN [Suspect]
     Active Substance: MELPHALAN
     Indication: Bone marrow conditioning regimen
     Dosage: 140 MILLIGRAM/SQ. METER, RECEIVED ON DAY -2 OF TRANSPLANTATION
     Route: 065
  5. CYCLOSPORINE [Concomitant]
     Active Substance: CYCLOSPORINE
     Indication: Prophylaxis against graft versus host disease
     Dosage: UNK, RECEIVED FROM DAY -1 OF TRANSPLANTATION
     Route: 065

REACTIONS (3)
  - Epstein-Barr virus infection [Unknown]
  - Post transplant lymphoproliferative disorder [Recovered/Resolved]
  - Drug ineffective [Unknown]
